FAERS Safety Report 9190107 (Version 1)
Quarter: 2013Q1

REPORT INFORMATION
  Report Type: Spontaneous
  Country: US (occurrence: None)
  Receive Date: 20120703
  Receipt Date: 20120703
  Transmission Date: 20140127
  Serious: No
  Sender: FDA-Public Use
  Company Number: PHEH2012US006032

PATIENT
  Sex: Female

DRUGS (12)
  1. GILENYA [Suspect]
     Indication: MULTIPLE SCLEROSIS
     Route: 048
     Dates: start: 20120221
  2. POTASSIUM CHLORATE (POTASSIUM CHLORATE) [Concomitant]
  3. ESTRADIOL (ESTRADIOL) (GEL) [Concomitant]
  4. FLUOXETINE (FLUOXETINE HYDROCHLORIDE) [Concomitant]
  5. LEVETIRACETAM (LEVETIRACETAM) [Concomitant]
  6. GABAPENTIN (GABAPENTIN) [Concomitant]
  7. TIZANIDINE (TIZANIDINE) [Concomitant]
  8. MULTI-VIT (VITAMINS NOS) [Concomitant]
  9. OMEGA 3 (FISH OIL) [Concomitant]
  10. FUROSEMIDE (FUROSEMIDE) [Concomitant]
  11. OSCAL (CALCIUM CARBONATE) [Concomitant]
  12. VITAMIN D (ERGOCALCIFEROL) [Concomitant]

REACTIONS (6)
  - Myalgia [None]
  - Nausea [None]
  - Palpitations [None]
  - Chest discomfort [None]
  - Dyspnoea [None]
  - Dizziness [None]
